FAERS Safety Report 9795461 (Version 1)
Quarter: 2014Q1

REPORT INFORMATION
  Report Type: Spontaneous
  Country: US (occurrence: US)
  Receive Date: 20140103
  Receipt Date: 20140103
  Transmission Date: 20141002
  Serious: Yes (Hospitalization, Other)
  Sender: FDA-Public Use
  Company Number: US-BAYER-2014-000795

PATIENT
  Age: 21 Year
  Sex: Female

DRUGS (7)
  1. YAZ [Suspect]
  2. PRILOSEC [Concomitant]
  3. DIFLUCAN [Concomitant]
  4. CIPRO [Concomitant]
  5. FENTANYL [Concomitant]
  6. DILAUDID [Concomitant]
  7. ZOFRAN [Concomitant]

REACTIONS (2)
  - Pancreatitis [None]
  - Cholecystitis acute [None]
